FAERS Safety Report 26181472 (Version 1)
Quarter: 2025Q4

REPORT INFORMATION
  Report Type: Spontaneous
  Country: US (occurrence: US)
  Receive Date: 20251221
  Receipt Date: 20251221
  Transmission Date: 20260117
  Serious: Yes (Hospitalization, Other)
  Sender: GALPHARM INTERNATIONAL
  Company Number: US-MLMSERVICE-20251204-PI739534-00029-1

PATIENT
  Age: 49 Year
  Sex: Female

DRUGS (1)
  1. ACETAMINOPHEN [Suspect]
     Active Substance: ACETAMINOPHEN
     Indication: Product used for unknown indication
     Dosage: UNKNOWN, UNKNOWN
     Route: 048

REACTIONS (2)
  - Metabolic acidosis [Recovering/Resolving]
  - Pyroglutamic acidosis [Recovering/Resolving]
